FAERS Safety Report 5517880-9 (Version None)
Quarter: 2007Q4

REPORT INFORMATION
  Report Type: 
  Country: None (occurrence: None)
  Receive Date: 20071113
  Receipt Date: 20071101
  Transmission Date: 20080405
  Serious: Yes (Hospitalization)
  Sender: FDA-Public Use
  Company Number: 2007-03461

PATIENT
  Sex: Male
  Weight: 77.4 kg

DRUGS (2)
  1. VELCADE [Suspect]
     Indication: ACUTE MYELOID LEUKAEMIA
     Dosage: 1.00 MG/M2, INTRAVENOUS
     Route: 042
     Dates: start: 20070925, end: 20071005
  2. TIPIFARNIB(TIPIFARNIB) ORAL DRUG UNSPECIFIED FORM [Suspect]
     Indication: ACUTE MYELOID LEUKAEMIA
     Dosage: 600.00 MG, ORAL
     Route: 048
     Dates: start: 20070925, end: 20071007

REACTIONS (2)
  - HERPES SIMPLEX [None]
  - OESOPHAGITIS ULCERATIVE [None]
